FAERS Safety Report 11891013 (Version 1)
Quarter: 2016Q1

REPORT INFORMATION
  Report Type: Spontaneous
  Country: GB (occurrence: GB)
  Receive Date: 20160106
  Receipt Date: 20160106
  Transmission Date: 20160526
  Serious: Yes (Disabling)
  Sender: FDA-Public Use
  Company Number: GB-ACCORD-036760

PATIENT
  Age: 92 Year
  Sex: Female
  Weight: 34 kg

DRUGS (6)
  1. CLOPIDOGREL [Suspect]
     Active Substance: CLOPIDOGREL BISULFATE
     Indication: CEREBROVASCULAR DISORDER
     Route: 048
     Dates: start: 20130513, end: 20151118
  2. MATRIFEN [Concomitant]
     Active Substance: FENTANYL
     Indication: PAIN
     Dosage: STABLE DOSE FOR YEARS
  3. SENNA [Concomitant]
     Active Substance: SENNA LEAF\SENNOSIDES\SENNOSIDES A AND B
  4. LAXIDO [Concomitant]
     Active Substance: POLYETHYLENE GLYCOL 3350\POTASSIUM CHLORIDE\SODIUM BICARBONATE\SODIUM CHLORIDE
  5. OLANZAPINE. [Concomitant]
     Active Substance: OLANZAPINE
  6. PARACETAMOL [Concomitant]
     Active Substance: ACETAMINOPHEN

REACTIONS (3)
  - Hyporesponsive to stimuli [Recovered/Resolved]
  - Mental impairment [Recovered/Resolved]
  - Confusional state [Recovered/Resolved]
